FAERS Safety Report 7801899-9 (Version None)
Quarter: 2011Q4

REPORT INFORMATION
  Report Type: 
  Country: None (occurrence: None)
  Receive Date: 20111005
  Receipt Date: 20110928
  Transmission Date: 20120403
  Serious: Yes (Hospitalization)
  Sender: FDA-Public Use
  Company Number: TCI2011A04924

PATIENT
  Age: 73 Year
  Sex: Female

DRUGS (3)
  1. DISOPYRAMIDE [Suspect]
     Indication: CARDIAC FIBRILLATION
     Dosage: 300 MG (300 MG, 1 D), PER ORAL
     Route: 048
  2. METHIMAZOLE [Concomitant]
  3. LANSOPRAZOLE [Suspect]
     Indication: GASTROOESOPHAGEAL REFLUX DISEASE
     Dosage: 15 MG (15 MG, 1 D  - 2) PER ORAL
     Route: 048

REACTIONS (5)
  - SINUS BRADYCARDIA [None]
  - TORSADE DE POINTES [None]
  - SYNCOPE [None]
  - ELECTROCARDIOGRAM QT PROLONGED [None]
  - DRUG INTERACTION [None]
